FAERS Safety Report 4415196-5 (Version None)
Quarter: 2004Q3

REPORT INFORMATION
  Report Type: 
  Country: None (occurrence: None)
  Receive Date: 20040804
  Receipt Date: 20040707
  Transmission Date: 20050211
  Serious: Yes (Other)
  Sender: FDA-Public Use
  Company Number: PHRM2004FR02347

PATIENT
  Age: 60 Year
  Sex: Male
  Weight: 78 kg

DRUGS (1)
  1. TAREG [Suspect]
     Indication: HYPERTENSION
     Dosage: 80 MG/DAY
     Route: 048
     Dates: start: 20040517, end: 20040706

REACTIONS (8)
  - ASTHENIA [None]
  - HAEMATOCRIT DECREASED [None]
  - HAEMOGLOBIN DECREASED [None]
  - HYPOCHROMIC ANAEMIA [None]
  - IRON DEFICIENCY ANAEMIA [None]
  - MEAN CELL HAEMOGLOBIN [None]
  - MEAN CELL VOLUME DECREASED [None]
  - PALLOR [None]
